FAERS Safety Report 5085041-6 (Version None)
Quarter: 2006Q3

REPORT INFORMATION
  Report Type: 
  Country: None (occurrence: None)
  Receive Date: 20060815
  Receipt Date: 20060731
  Transmission Date: 20061208
  Serious: Yes (Hospitalization, Other)
  Sender: FDA-Public Use
  Company Number: US200608000111

PATIENT
  Sex: Female

DRUGS (5)
  1. FORTEO [Suspect]
     Dates: start: 20040401, end: 20060101
  2. CRESTOR [Concomitant]
  3. AVAPRO [Concomitant]
  4. NEXIUM [Concomitant]
  5. FORTEO [Concomitant]

REACTIONS (2)
  - BONE DENSITY DECREASED [None]
  - COLON CANCER [None]
